FAERS Safety Report 15933075 (Version 2)
Quarter: 2019Q1

REPORT INFORMATION
  Report Type: Spontaneous
  Country: US (occurrence: US)
  Receive Date: 20190207
  Receipt Date: 20190207
  Transmission Date: 20190417
  Serious: No
  Sender: FDA-Public Use
  Company Number: US-KYOWAKIRIN-2018BKK011377

PATIENT

DRUGS (2)
  1. CRYSVITA [Suspect]
     Active Substance: BUROSUMAB-TWZA
     Indication: HEREDITARY HYPOPHOSPHATAEMIC RICKETS
     Dosage: 10 MG, EVERY TWO WEEKS
     Route: 058
     Dates: start: 20181114, end: 201811
  2. CRYSVITA [Suspect]
     Active Substance: BUROSUMAB-TWZA
     Indication: HEREDITARY HYPOPHOSPHATAEMIC RICKETS
     Dosage: 20 MG, EVERY TWO WEEKS
     Route: 058
     Dates: start: 20181113

REACTIONS (3)
  - Injection site pain [Recovered/Resolved]
  - Injection site bruising [Unknown]
  - Crying [Unknown]

NARRATIVE: CASE EVENT DATE: 2018
